FAERS Safety Report 4329731-9 (Version None)
Quarter: 2004Q2

REPORT INFORMATION
  Report Type: 
  Country: None (occurrence: None)
  Receive Date: 20040401
  Receipt Date: 20040308
  Transmission Date: 20050107
  Serious: Yes (Hospitalization)
  Sender: FDA-Public Use
  Company Number: US-GLAXOSMITHKLINE-A0501728A

PATIENT
  Age: 50 Year
  Sex: Female
  Weight: 104.5 kg

DRUGS (9)
  1. ALOSETRON [Suspect]
     Indication: IRRITABLE BOWEL SYNDROME
     Dosage: 1MG TWICE PER DAY
     Route: 048
     Dates: start: 20040210, end: 20040305
  2. ADVAIR DISKUS 100/50 [Concomitant]
  3. DIOVAN [Concomitant]
  4. DOXEPIN HCL [Concomitant]
  5. LITHIUM [Concomitant]
  6. NAVANE [Concomitant]
  7. PROTONIX [Concomitant]
  8. SYNTHROID [Concomitant]
  9. WELLBUTRIN [Concomitant]

REACTIONS (12)
  - ABDOMINAL DISTENSION [None]
  - ABDOMINAL PAIN [None]
  - BLOOD GLUCOSE INCREASED [None]
  - CONSTIPATION [None]
  - FAECALOMA [None]
  - HYPOKALAEMIA [None]
  - INTESTINAL OBSTRUCTION [None]
  - MEAN CELL VOLUME DECREASED [None]
  - MEAN PLATELET VOLUME DECREASED [None]
  - NAUSEA [None]
  - PLATELET COUNT INCREASED [None]
  - WHITE BLOOD CELL COUNT INCREASED [None]
